FAERS Safety Report 20036235 (Version 1)
Quarter: 2021Q4

REPORT INFORMATION
  Report Type: Spontaneous
  Country: CA (occurrence: CA)
  Receive Date: 20211105
  Receipt Date: 20211105
  Transmission Date: 20220303
  Serious: Yes (Hospitalization, Other)
  Sender: FDA-Public Use
  Company Number: CA-AUROBINDO-AUR-APL-2021-044518

PATIENT
  Age: 47 Year
  Sex: Female

DRUGS (3)
  1. RAMIPRIL [Suspect]
     Active Substance: RAMIPRIL
     Indication: Product used for unknown indication
     Dosage: 5 MILLIGRAM
     Route: 065
  2. RAMIPRIL [Suspect]
     Active Substance: RAMIPRIL
     Dosage: 2.5 MILLIGRAM
     Route: 065
  3. AVONEX [Suspect]
     Active Substance: INTERFERON BETA-1A
     Indication: Multiple sclerosis
     Dosage: 30 MILLIGRAM, EVERY WEEK
     Route: 030

REACTIONS (1)
  - Colitis ischaemic [Recovered/Resolved]
